FAERS Safety Report 12997017 (Version 2)
Quarter: 2016Q4

REPORT INFORMATION
  Report Type: Spontaneous
  Country: FR (occurrence: FR)
  Receive Date: 20161205
  Receipt Date: 20161224
  Transmission Date: 20170207
  Serious: Yes (Life-Threatening, Other)
  Sender: FDA-Public Use
  Company Number: FR-AMGEN-FRASP2016169730

PATIENT
  Age: 64 Year
  Sex: Female

DRUGS (8)
  1. KYPROLIS [Suspect]
     Active Substance: CARFILZOMIB
     Dosage: 38.8 MG, UNK
     Route: 042
     Dates: start: 20161030
  2. KYPROLIS [Suspect]
     Active Substance: CARFILZOMIB
     Dosage: 52.4 MG, UNK
     Route: 042
     Dates: start: 20161107
  3. KYPROLIS [Suspect]
     Active Substance: CARFILZOMIB
     Indication: PLASMA CELL MYELOMA
     Dosage: 38.8 MG, UNK
     Route: 042
     Dates: start: 20161029
  4. KYPROLIS [Suspect]
     Active Substance: CARFILZOMIB
     Dosage: 52.4 MG, UNK
     Route: 042
     Dates: start: 20161112
  5. KYPROLIS [Suspect]
     Active Substance: CARFILZOMIB
     Dosage: 52.4 MG, UNK
     Route: 042
     Dates: start: 20161113, end: 20161113
  6. REVLIMID [Suspect]
     Active Substance: LENALIDOMIDE
     Indication: PLASMA CELL MYELOMA
     Dosage: 10 MG, QD
     Route: 042
     Dates: start: 20161029, end: 20161113
  7. DEXAMETHASONE. [Suspect]
     Active Substance: DEXAMETHASONE
     Indication: PLASMA CELL MYELOMA
     Dosage: UNK
     Route: 048
     Dates: start: 20161029, end: 20161113
  8. KYPROLIS [Suspect]
     Active Substance: CARFILZOMIB
     Dosage: 52.4 MG, UNK
     Route: 042
     Dates: start: 20161106

REACTIONS (1)
  - Respiratory distress [Recovering/Resolving]

NARRATIVE: CASE EVENT DATE: 20161109
